FAERS Safety Report 8491549-3 (Version None)
Quarter: 2012Q3

REPORT INFORMATION
  Report Type: 
  Country: None (occurrence: None)
  Receive Date: 20120706
  Receipt Date: 20120627
  Transmission Date: 20120928
  Serious: Yes (Hospitalization, Other)
  Sender: FDA-Public Use
  Company Number: US-JNJFOC-20120602514

PATIENT
  Sex: Female
  Weight: 71.22 kg

DRUGS (7)
  1. PAIN MEDICATION UNSPECIFIED [Suspect]
     Indication: PAIN
     Dates: start: 20120101
  2. LEVOXYL [Concomitant]
     Indication: THYROID DISORDER
     Dates: start: 20070602
  3. PRAVASTATIN [Concomitant]
  4. LABETALOL HCL [Concomitant]
     Indication: HYPERTENSION
  5. METOPROLOL [Concomitant]
  6. XARELTO [Suspect]
     Indication: CEREBROVASCULAR ACCIDENT PROPHYLAXIS
     Route: 048
     Dates: start: 20120301, end: 20120501
  7. XARELTO [Suspect]
     Indication: ATRIAL FIBRILLATION
     Route: 048
     Dates: start: 20120301, end: 20120501

REACTIONS (6)
  - HYPOAESTHESIA [None]
  - PARALYSIS [None]
  - PRODUCT QUALITY ISSUE [None]
  - PAIN [None]
  - INTESTINAL ULCER [None]
  - WEIGHT DECREASED [None]
